FAERS Safety Report 7513378-7 (Version None)
Quarter: 2011Q2

REPORT INFORMATION
  Report Type: 
  Country: None (occurrence: None)
  Receive Date: 20110525
  Receipt Date: 20110525
  Transmission Date: 20111010
  Serious: No
  Sender: FDA-Public Use
  Company Number: None

PATIENT
  Age: 49 Year
  Sex: Female
  Weight: 79.3795 kg

DRUGS (2)
  1. DAPTOMYCIN [Suspect]
  2. DAPTOMYCIN [Suspect]
     Indication: STAPHYLOCOCCAL INFECTION
     Dosage: 475MG Q 24 HRS IV
     Route: 042
     Dates: start: 20110407, end: 20110508

REACTIONS (2)
  - RASH [None]
  - PRURITUS [None]
